FAERS Safety Report 6507155-3 (Version None)
Quarter: 2009Q4

REPORT INFORMATION
  Report Type: 
  Country: None (occurrence: None)
  Receive Date: 20091221
  Receipt Date: 20091210
  Transmission Date: 20100525
  Serious: Yes (Other)
  Sender: FDA-Public Use
  Company Number: PHHY2009CA49578

PATIENT
  Sex: Female

DRUGS (2)
  1. SANDOSTATIN [Suspect]
     Indication: CARCINOID SYNDROME
     Dosage: 30 MG, EVERY 4 WEEKS
     Route: 030
     Dates: start: 20070725
  2. SANDOSTATIN [Suspect]
     Dosage: 30 MG EVERY 2 WEEKS
     Route: 030

REACTIONS (3)
  - BRONCHITIS [None]
  - FEELING ABNORMAL [None]
  - HEPATIC LESION [None]
